FAERS Safety Report 26160131 (Version 1)
Quarter: 2025Q4

REPORT INFORMATION
  Report Type: Spontaneous
  Country: US (occurrence: None)
  Receive Date: 20251216
  Receipt Date: 20251216
  Transmission Date: 20260117
  Serious: No
  Sender: ENDO
  Company Number: US-ENDO USA, INC.-2025-001797

PATIENT
  Sex: Male

DRUGS (8)
  1. XIAFLEX [Suspect]
     Active Substance: COLLAGENASE CLOSTRIDIUM HISTOLYTICUM
     Indication: Peyronie^s disease
     Dosage: UNK UNKNOWN, SINGLE (CYCLE 4, INJECTION 1)
     Dates: start: 20250721, end: 20250721
  2. XIAFLEX [Suspect]
     Active Substance: COLLAGENASE CLOSTRIDIUM HISTOLYTICUM
     Dosage: UNK UNKNOWN, SINGLE (CYCLE 1, INJECTION 1)
     Dates: start: 20250106, end: 20250106
  3. XIAFLEX [Suspect]
     Active Substance: COLLAGENASE CLOSTRIDIUM HISTOLYTICUM
     Dosage: UNK UNKNOWN, SINGLE (CYCLE 1, INJECTION 2)
     Dates: start: 20250108, end: 20250108
  4. XIAFLEX [Suspect]
     Active Substance: COLLAGENASE CLOSTRIDIUM HISTOLYTICUM
     Dosage: UNK UNKNOWN, SINGLE (CYCLE 2, INJECTION 1)
     Dates: start: 20250317, end: 20250317
  5. XIAFLEX [Suspect]
     Active Substance: COLLAGENASE CLOSTRIDIUM HISTOLYTICUM
     Dosage: UNK UNKNOWN, SINGLE (CYCLE 2, INJECTION 2)
     Dates: start: 20250319, end: 20250319
  6. XIAFLEX [Suspect]
     Active Substance: COLLAGENASE CLOSTRIDIUM HISTOLYTICUM
     Dosage: UNK UNKNOWN, SINGLE (CYCLE 3, INJECTION 1)
     Dates: start: 20250512, end: 20250512
  7. XIAFLEX [Suspect]
     Active Substance: COLLAGENASE CLOSTRIDIUM HISTOLYTICUM
     Dosage: UNK UNKNOWN, SINGLE (CYCLE 3, INJECTION 2)
     Dates: start: 20250514, end: 20250514
  8. XIAFLEX [Suspect]
     Active Substance: COLLAGENASE CLOSTRIDIUM HISTOLYTICUM
     Dosage: UNK UNKNOWN, SINGLE (CYCLE 4, INJECTION 2)
     Dates: start: 20250812, end: 20250812

REACTIONS (2)
  - Contusion [Unknown]
  - Inappropriate schedule of product administration [Recovered/Resolved]

NARRATIVE: CASE EVENT DATE: 20250301
